FAERS Safety Report 5341782-4 (Version None)
Quarter: 2007Q2

REPORT INFORMATION
  Report Type: 
  Country: None (occurrence: None)
  Receive Date: 20070601
  Receipt Date: 20070529
  Transmission Date: 20071010
  Serious: No
  Sender: FDA-Public Use
  Company Number: DE-ELI_LILLY_AND_COMPANY-DE200705007209

PATIENT
  Age: 56 Year
  Sex: Male

DRUGS (1)
  1. CIALIS [Suspect]
     Dosage: 10 MG, AS NEEDED
     Route: 048

REACTIONS (1)
  - VISUAL DISTURBANCE [None]
